FAERS Safety Report 6098992-0 (Version None)
Quarter: 2009Q1

REPORT INFORMATION
  Report Type: 
  Country: None (occurrence: None)
  Receive Date: 20090302
  Receipt Date: 20090216
  Transmission Date: 20090719
  Serious: Yes (Death, Other)
  Sender: FDA-Public Use
  Company Number: CN-ROCHE-616901

PATIENT
  Age: 27 Year
  Sex: Male

DRUGS (4)
  1. MYCOPHENOLATE MOFETIL [Suspect]
     Indication: IGA NEPHROPATHY
     Route: 065
  2. PREDNISONE [Suspect]
     Indication: IGA NEPHROPATHY
     Route: 065
  3. PREDNISONE [Suspect]
     Route: 065
  4. SULFAMETHOXAZOLE AND TRIMETHOPRIM [Concomitant]
     Route: 042

REACTIONS (3)
  - LYMPHOCYTE COUNT DECREASED [None]
  - PNEUMOCYSTIS JIROVECI PNEUMONIA [None]
  - RESPIRATORY FAILURE [None]
